FAERS Safety Report 14248604 (Version 1)
Quarter: 2017Q4

REPORT INFORMATION
  Report Type: Spontaneous
  Country: JP (occurrence: JP)
  Receive Date: 20171204
  Receipt Date: 20171204
  Transmission Date: 20180321
  Serious: Yes (Other)
  Sender: FDA-Public Use
  Company Number: JP-PFIZER INC-2017512865

PATIENT
  Age: 39 Year
  Sex: Male

DRUGS (2)
  1. IDARUBICIN HCL [Suspect]
     Active Substance: IDARUBICIN HYDROCHLORIDE
  2. ARA-C [Suspect]
     Active Substance: CYTARABINE

REACTIONS (2)
  - Disseminated intravascular coagulation [Unknown]
  - Febrile neutropenia [Unknown]
